FAERS Safety Report 7037697-6 (Version None)
Quarter: 2010Q4

REPORT INFORMATION
  Report Type: 
  Country: None (occurrence: None)
  Receive Date: 20101011
  Receipt Date: 20100930
  Transmission Date: 20110411
  Serious: Yes (Hospitalization, Other)
  Sender: FDA-Public Use
  Company Number: US-JNJFOC-20101000711

PATIENT
  Sex: Female
  Weight: 51.26 kg

DRUGS (3)
  1. REMICADE [Suspect]
     Indication: PRODUCT USED FOR UNKNOWN INDICATION
     Route: 042
  2. HUMIRA [Suspect]
     Indication: CROHN'S DISEASE
     Dosage: 40 MG/0.8 ML PEN
     Route: 058
  3. MULTI-VITAMINS [Concomitant]

REACTIONS (5)
  - CONSTIPATION [None]
  - FREQUENT BOWEL MOVEMENTS [None]
  - LIVER FUNCTION TEST ABNORMAL [None]
  - OVARIAN CYST RUPTURED [None]
  - WHITE BLOOD CELL COUNT INCREASED [None]
